FAERS Safety Report 23753050 (Version 1)
Quarter: 2024Q2

REPORT INFORMATION
  Report Type: Spontaneous
  Country: ES (occurrence: ES)
  Receive Date: 20240417
  Receipt Date: 20240417
  Transmission Date: 20240717
  Serious: Yes (Other)
  Sender: FDA-Public Use
  Company Number: ES-GENMAB-2024-01263

PATIENT
  Age: 35 Year
  Sex: Male

DRUGS (1)
  1. EPCORITAMAB [Suspect]
     Active Substance: EPCORITAMAB
     Indication: High-grade B-cell lymphoma
     Dosage: 48 MILLIGRAM, CYCLICAL
     Route: 058
     Dates: start: 20231026, end: 20231214

REACTIONS (3)
  - Influenza [Recovered/Resolved]
  - Impetigo [Recovered/Resolved]
  - Neutropenia [Recovered/Resolved]

NARRATIVE: CASE EVENT DATE: 20231129
